FAERS Safety Report 6519595-7 (Version None)
Quarter: 2009Q4

REPORT INFORMATION
  Report Type: 
  Country: None (occurrence: None)
  Receive Date: 20091228
  Receipt Date: 20090910
  Transmission Date: 20100525
  Serious: Yes (Hospitalization, Other)
  Sender: FDA-Public Use
  Company Number: US-BAXTER-2009BH014095

PATIENT
  Age: 16 Year
  Sex: Male

DRUGS (4)
  1. KETOROLAC TROMETHAMINE [Suspect]
     Indication: ABDOMINAL PAIN
     Route: 030
     Dates: start: 20080108, end: 20080108
  2. CONTRAST DYE [Suspect]
     Indication: ABDOMINAL PAIN
     Route: 065
     Dates: start: 20080109, end: 20080109
  3. PHENERGAN HCL [Concomitant]
     Indication: VOMITING
     Route: 030
     Dates: start: 20080108, end: 20080108
  4. ROCEPHIN [Concomitant]
     Indication: INFECTION
     Route: 065
     Dates: start: 20080108, end: 20080108

REACTIONS (7)
  - HYPERTENSION [None]
  - HYPOCOMPLEMENTAEMIA [None]
  - RENAL CORTICAL NECROSIS [None]
  - RENAL FAILURE ACUTE [None]
  - RENAL FAILURE CHRONIC [None]
  - RHABDOMYOLYSIS [None]
  - VASOCONSTRICTION [None]
